FAERS Safety Report 8868957 (Version 5)
Quarter: 2013Q2

REPORT INFORMATION
  Report Type: Spontaneous
  Country: US (occurrence: US)
  Receive Date: 20121027
  Receipt Date: 20130513
  Transmission Date: 20140414
  Serious: Yes (Death)
  Sender: FDA-Public Use
  Company Number: US-009507513-1210USA012225

PATIENT
  Sex: Female

DRUGS (1)
  1. THERAPY UNSPECIFIED [Suspect]
     Route: 060

REACTIONS (1)
  - Completed suicide [Fatal]
